FAERS Safety Report 8283305-6 (Version None)
Quarter: 2012Q2

REPORT INFORMATION
  Report Type: 
  Country: None (occurrence: None)
  Receive Date: 20120413
  Receipt Date: 20120402
  Transmission Date: 20120825
  Serious: Yes (Other)
  Sender: FDA-Public Use
  Company Number: US-ELI_LILLY_AND_COMPANY-US201204001262

PATIENT
  Sex: Male

DRUGS (2)
  1. ADCIRCA [Suspect]
  2. LETAIRIS [Concomitant]
     Indication: PULMONARY HYPERTENSION
     Dosage: 10 MG, UNKNOWN
     Dates: start: 20120131, end: 20120202

REACTIONS (7)
  - HEADACHE [None]
  - PALPITATIONS [None]
  - EPISTAXIS [None]
  - CHROMATURIA [None]
  - INSOMNIA [None]
  - VISUAL IMPAIRMENT [None]
  - FATIGUE [None]
